FAERS Safety Report 6809325-3 (Version None)
Quarter: 2010Q2

REPORT INFORMATION
  Report Type: 
  Country: None (occurrence: None)
  Receive Date: 20100630
  Receipt Date: 20100621
  Transmission Date: 20101027
  Serious: Yes (Hospitalization)
  Sender: FDA-Public Use
  Company Number: IT-ABBOTT-10P-083-0652980-00

PATIENT
  Sex: Female

DRUGS (7)
  1. VECLAM [Suspect]
     Indication: SKIN CYST EXCISION
     Route: 048
     Dates: start: 20100604, end: 20100604
  2. ATENOLOLO [Concomitant]
     Indication: DRUG USE FOR UNKNOWN INDICATION
     Dosage: HALF TABLET
     Route: 048
  3. PANTORC [Concomitant]
     Indication: DRUG USE FOR UNKNOWN INDICATION
     Route: 048
  4. BLOPRESS [Concomitant]
     Indication: HYPERTENSION
     Route: 048
  5. MODURETIC 5-50 [Concomitant]
     Indication: HYPERTENSION
     Route: 048
  6. ASPIRIN [Concomitant]
     Indication: CARDIOVASCULAR EVENT PROPHYLAXIS
     Route: 048
  7. FERRO [Concomitant]
     Indication: DRUG USE FOR UNKNOWN INDICATION

REACTIONS (2)
  - DYSPNOEA [None]
  - FACE OEDEMA [None]
